FAERS Safety Report 13186914 (Version 2)
Quarter: 2017Q1

REPORT INFORMATION
  Report Type: Spontaneous
  Country: GB (occurrence: GB)
  Receive Date: 20170206
  Receipt Date: 20170207
  Transmission Date: 20170428
  Serious: Yes (Death, Hospitalization, Other)
  Sender: FDA-Public Use
  Company Number: GB-AMGEN-GBRSP2017016108

PATIENT
  Age: 90 Year
  Sex: Male

DRUGS (1)
  1. ARANESP [Suspect]
     Active Substance: DARBEPOETIN ALFA
     Indication: PRODUCT USED FOR UNKNOWN INDICATION
     Dosage: 40 MUG/0.4 ML, UNK
     Route: 065

REACTIONS (5)
  - Death [Fatal]
  - Renal impairment [Unknown]
  - Malaise [Unknown]
  - Hypotension [Unknown]
  - Seizure [Unknown]

NARRATIVE: CASE EVENT DATE: 201701
